FAERS Safety Report 6572394-2 (Version None)
Quarter: 2010Q1

REPORT INFORMATION
  Report Type: 
  Country: None (occurrence: None)
  Receive Date: 20100205
  Receipt Date: 20100203
  Transmission Date: 20100710
  Serious: Yes (Life-Threatening, Hospitalization)
  Sender: FDA-Public Use
  Company Number: GB-B.I. PHARMACEUTICALS,INC./RIDGEFIELD-2010-UK-00021UK

PATIENT
  Age: 67 Year
  Sex: Male
  Weight: 76 kg

DRUGS (3)
  1. SPIRIVA [Suspect]
     Dates: start: 20080111
  2. CHAMPIX [Suspect]
     Route: 048
     Dates: start: 20080108
  3. ALBUTEROL [Concomitant]
     Route: 055

REACTIONS (7)
  - ACUTE MYELOID LEUKAEMIA [None]
  - FEBRILE NEUTROPENIA [None]
  - HORDEOLUM [None]
  - NAUSEA [None]
  - PERIORBITAL CELLULITIS [None]
  - RESPIRATORY DISORDER [None]
  - SEPSIS [None]
